FAERS Safety Report 9716670 (Version 1)
Quarter: 2013Q4

REPORT INFORMATION
  Report Type: Spontaneous
  Country: US (occurrence: US)
  Receive Date: 20131127
  Receipt Date: 20131127
  Transmission Date: 20140711
  Serious: Yes (Death, Hospitalization)
  Sender: FDA-Public Use
  Company Number: US-MYLANLABS-2013S1026320

PATIENT
  Age: 50 Year
  Sex: Female

DRUGS (4)
  1. VICODIN [Suspect]
     Indication: PAIN
     Route: 048
  2. PARACETAMOL [Suspect]
     Indication: PAIN
     Route: 048
  3. NITROFURANTOIN [Suspect]
     Indication: URINARY TRACT INFECTION
     Route: 065
  4. DILAUDID [Concomitant]
     Indication: PAIN
     Route: 065

REACTIONS (9)
  - Acute hepatic failure [Fatal]
  - Coagulopathy [Not Recovered/Not Resolved]
  - Malnutrition [Recovered/Resolved]
  - Pneumonia [Recovered/Resolved]
  - Clostridium difficile colitis [Fatal]
  - Septic shock [Fatal]
  - Respiratory failure [Fatal]
  - Gastrointestinal haemorrhage [Fatal]
  - Cerebral haemorrhage [Fatal]
